FAERS Safety Report 7221495-4 (Version None)
Quarter: 2011Q1

REPORT INFORMATION
  Report Type: 
  Country: None (occurrence: None)
  Receive Date: 20110103
  Receipt Date: 20101215
  Transmission Date: 20110831
  Serious: Yes (Death, Hospitalization)
  Sender: FDA-Public Use
  Company Number: DSA_44590_2010

PATIENT
  Age: 73 Year
  Sex: Female

DRUGS (4)
  1. AMILORIDE HCL AND HYDROCHLOROTHIAZIDE [Suspect]
     Indication: HYPERTENSION
     Dosage: (5/50 MG ORAL)
     Route: 048
  2. FELODIPINE W/METOPROLOL SUCCINATE (FELODIPINE/METOPROLOL SUCCINATE) [Suspect]
     Indication: PRODUCT USED FOR UNKNOWN INDICATION
     Dosage: (DF)
  3. REPAGLINIDE [Suspect]
     Indication: TYPE 2 DIABETES MELLITUS
     Dosage: (0.5 MG ORAL)
     Route: 048
  4. ENALAPRIL MALEATE [Suspect]
     Indication: PRODUCT USED FOR UNKNOWN INDICATION
     Dosage: (20 MG ORAL)
     Route: 048

REACTIONS (11)
  - METASTASES TO LUNG [None]
  - ATRIAL HYPERTROPHY [None]
  - CARDIAC FAILURE [None]
  - HYPERTRICHOSIS [None]
  - METASTASES TO LIVER [None]
  - DISEASE PROGRESSION [None]
  - ADRENAL CARCINOMA [None]
  - TYPE 2 DIABETES MELLITUS [None]
  - OEDEMA PERIPHERAL [None]
  - ATRIAL FIBRILLATION [None]
  - HEPATOTOXICITY [None]
